FAERS Safety Report 6235518-2 (Version None)
Quarter: 2009Q2

REPORT INFORMATION
  Report Type: 
  Country: None (occurrence: None)
  Receive Date: 20090618
  Receipt Date: 20090202
  Transmission Date: 20091009
  Serious: No
  Sender: FDA-Public Use
  Company Number: US-ASTRAZENECA-2008UW15382

PATIENT
  Age: 64 Year
  Sex: Female

DRUGS (6)
  1. RHINOCORT [Suspect]
     Indication: ASTHMA
     Dosage: 2 SPRAYS IN EACH NOSTRIL TWICE DAILY
     Route: 045
     Dates: start: 20060701, end: 20080701
  2. RHINOCORT [Suspect]
     Indication: HYPERSENSITIVITY
     Dosage: 2 SPRAYS IN EACH NOSTRIL TWICE DAILY
     Route: 045
     Dates: start: 20060701, end: 20080701
  3. RHINOCORT [Suspect]
     Dosage: 2 SPRAYS IN RIGHT NOSTRIL AND ONE SPRAY IN LEFT NOSTRIL TWICE DAILY
     Route: 045
     Dates: start: 20080701
  4. RHINOCORT [Suspect]
     Dosage: 2 SPRAYS IN RIGHT NOSTRIL AND ONE SPRAY IN LEFT NOSTRIL TWICE DAILY
     Route: 045
     Dates: start: 20080701
  5. BACTROBAN [Concomitant]
  6. ADVAIR HFA [Concomitant]

REACTIONS (3)
  - COUGH [None]
  - EPISTAXIS [None]
  - WEIGHT DECREASED [None]
